FAERS Safety Report 13493357 (Version 1)
Quarter: 2017Q2

REPORT INFORMATION
  Report Type: Spontaneous
  Country: US (occurrence: US)
  Receive Date: 20170427
  Receipt Date: 20170427
  Transmission Date: 20170830
  Serious: No
  Sender: FDA-Public Use
  Company Number: US-ROCHE-1498025

PATIENT
  Sex: Male

DRUGS (11)
  1. LORAZEPAM. [Concomitant]
     Active Substance: LORAZEPAM
     Route: 065
     Dates: start: 20141017
  2. ZOLOFT [Concomitant]
     Active Substance: SERTRALINE HYDROCHLORIDE
     Route: 065
     Dates: start: 20141030
  3. BABY ASPIRIN [Concomitant]
     Active Substance: ASPIRIN
     Route: 065
  4. PANTOPRAZOLE [Concomitant]
     Active Substance: PANTOPRAZOLE
     Route: 065
  5. FAMOTIDINE. [Concomitant]
     Active Substance: FAMOTIDINE
     Route: 065
  6. ERIVEDGE [Suspect]
     Active Substance: VISMODEGIB
     Indication: NEOPLASM MALIGNANT
     Route: 048
     Dates: start: 20141103, end: 20141125
  7. OMEPRAZOLE. [Concomitant]
     Active Substance: OMEPRAZOLE
     Route: 065
     Dates: start: 20140707
  8. SERTRALINE [Concomitant]
     Active Substance: SERTRALINE HYDROCHLORIDE
     Route: 065
     Dates: start: 20140707
  9. NEXIUM [Concomitant]
     Active Substance: ESOMEPRAZOLE MAGNESIUM
     Route: 065
  10. ALPRAZOLAM. [Concomitant]
     Active Substance: ALPRAZOLAM
     Route: 065
     Dates: start: 20140913
  11. OMEPRAZOLE. [Concomitant]
     Active Substance: OMEPRAZOLE
     Route: 065
     Dates: start: 20140707

REACTIONS (4)
  - Nausea [Recovered/Resolved]
  - Lethargy [Recovered/Resolved]
  - Muscle spasms [Recovered/Resolved]
  - Dizziness [Recovered/Resolved]
